FAERS Safety Report 22244914 (Version 4)
Quarter: 2024Q2

REPORT INFORMATION
  Report Type: Spontaneous
  Country: US (occurrence: US)
  Receive Date: 20230424
  Receipt Date: 20240403
  Transmission Date: 20240716
  Serious: Yes (Other)
  Sender: FDA-Public Use
  Company Number: US-BRISTOL-MYERS SQUIBB COMPANY-2023-054918

PATIENT
  Age: 74 Year
  Sex: Male

DRUGS (1)
  1. LENALIDOMIDE [Suspect]
     Active Substance: LENALIDOMIDE
     Indication: Plasma cell myeloma
     Dosage: TAKE 1 CAPSULE BY MOUTH EVERY DAY FOR 21 DAYS ON, FOLLOWED BY 7 DAYS OFF EVERY 28 DAYS
     Route: 048
     Dates: start: 20221116

REACTIONS (3)
  - Rash [Not Recovered/Not Resolved]
  - Gastroenteritis viral [Recovering/Resolving]
  - Nasopharyngitis [Recovering/Resolving]
